FAERS Safety Report 7326713-X (Version None)
Quarter: 2011Q1

REPORT INFORMATION
  Report Type: 
  Country: None (occurrence: None)
  Receive Date: 20110302
  Receipt Date: 20090903
  Transmission Date: 20110831
  Serious: Yes (Other)
  Sender: FDA-Public Use
  Company Number: US-PFIZER INC-2009243104

PATIENT
  Sex: Male
  Weight: 59 kg

DRUGS (8)
  1. LASIX [Concomitant]
     Dosage: UNK
  2. POTASSIUM [Concomitant]
     Dosage: UNK
  3. VFEND [Suspect]
     Indication: ASPERGILLOSIS
     Dosage: 200 MG, 2X/DAY
     Route: 042
  4. MEGACE [Concomitant]
     Dosage: UNK
  5. SPIRIVA [Concomitant]
     Dosage: UNK
  6. FLOVENT [Concomitant]
     Dosage: UNK
  7. PREDNISONE [Concomitant]
     Dosage: UNK
  8. MICAFUNGIN SODIUM [Concomitant]
     Dosage: UNK

REACTIONS (1)
  - TACHYCARDIA [None]
